FAERS Safety Report 9449869 (Version 1)
Quarter: 2013Q3

REPORT INFORMATION
  Report Type: Spontaneous
  Country: DE (occurrence: DE)
  Receive Date: 20130809
  Receipt Date: 20130809
  Transmission Date: 20140515
  Serious: Yes (Hospitalization)
  Sender: FDA-Public Use
  Company Number: DE-JNJFOC-20130802443

PATIENT
  Age: 29 Year
  Sex: Female
  Weight: 130 kg

DRUGS (1)
  1. RISPERDAL 1 MG [Suspect]
     Indication: PRODUCT USED FOR UNKNOWN INDICATION
     Route: 048
     Dates: start: 20130805, end: 20130805

REACTIONS (2)
  - Suicide attempt [Unknown]
  - Intentional overdose [Unknown]
